FAERS Safety Report 7238340-3 (Version None)
Quarter: 2011Q1

REPORT INFORMATION
  Report Type: 
  Country: None (occurrence: None)
  Receive Date: 20110121
  Receipt Date: 20110114
  Transmission Date: 20110831
  Serious: Yes (Life-Threatening)
  Sender: FDA-Public Use
  Company Number: US-BRISTOL-MYERS SQUIBB COMPANY-15491509

PATIENT
  Age: 70 Year
  Sex: Female

DRUGS (5)
  1. WARFARIN SODIUM [Suspect]
     Indication: EMBOLISM ARTERIAL
  2. BLINDED: APIXABAN [Suspect]
     Indication: EMBOLISM ARTERIAL
  3. COUMADIN [Suspect]
  4. BLINDED: ENOXAPARIN SODIUM [Suspect]
     Indication: EMBOLISM ARTERIAL
  5. PLACEBO [Suspect]
     Indication: EMBOLISM ARTERIAL

REACTIONS (1)
  - TOXICITY TO VARIOUS AGENTS [None]
